FAERS Safety Report 23254280 (Version 2)
Quarter: 2023Q4

REPORT INFORMATION
  Report Type: Spontaneous
  Country: IN (occurrence: IN)
  Receive Date: 20231202
  Receipt Date: 20231215
  Transmission Date: 20240110
  Serious: No
  Sender: FDA-Public Use
  Company Number: IN-MLMSERVICE-20231115-4663574-1

PATIENT
  Age: 39 Year
  Sex: Female

DRUGS (1)
  1. PACLITAXEL [Suspect]
     Active Substance: PACLITAXEL
     Indication: Invasive ductal breast carcinoma
     Dosage: 12 WEEKLY CYCLES, 150 MG/M2

REACTIONS (2)
  - Periarticular thenar erythema with onycholysis [Recovering/Resolving]
  - Photosensitivity reaction [Recovering/Resolving]
